FAERS Safety Report 4362667-6 (Version None)
Quarter: 2004Q2

REPORT INFORMATION
  Report Type: 
  Country: None (occurrence: None)
  Receive Date: 20040524
  Receipt Date: 20040505
  Transmission Date: 20050107
  Serious: Yes (Death)
  Sender: FDA-Public Use
  Company Number: 200414722GDDC

PATIENT
  Age: 55 Year
  Sex: Female

DRUGS (8)
  1. KETEK [Suspect]
     Indication: EAR INFECTION
     Route: 048
     Dates: start: 20040429
  2. KETEK [Suspect]
     Indication: SINUSITIS
     Route: 048
     Dates: start: 20040429
  3. ESTRACE [Concomitant]
     Indication: HORMONE REPLACEMENT THERAPY
     Dosage: DOSE: UNK
     Route: 048
  4. PROVERA [Concomitant]
     Indication: HORMONE REPLACEMENT THERAPY
     Dosage: DOSE: UNK
     Route: 048
  5. ATARAX [Concomitant]
     Indication: MULTIPLE ALLERGIES
     Dosage: DOSE: UNK
     Route: 048
  6. ANTI-HISTAMINE TAB [Concomitant]
     Indication: MULTIPLE ALLERGIES
     Dosage: DOSE: UNK
     Route: 048
  7. ALL OTHER THERAPEUTIC PRODUCTS [Concomitant]
     Dosage: DOSE: UNK
  8. DECONGESTANTS AND ANTIALLERGICS [Concomitant]
     Indication: SINUSITIS
     Dosage: DOSE: UNK
     Dates: start: 20040429

REACTIONS (3)
  - CORONARY ARTERY OCCLUSION [None]
  - HYPOKALAEMIA [None]
  - MYOCARDIAL INFARCTION [None]
